FAERS Safety Report 14901236 (Version 2)
Quarter: 2018Q2

REPORT INFORMATION
  Report Type: Spontaneous
  Country: BR (occurrence: BR)
  Receive Date: 20180516
  Receipt Date: 20180522
  Transmission Date: 20180711
  Serious: Yes (Hospitalization, Other)
  Sender: FDA-Public Use
  Company Number: BR-PFIZER INC-2018194141

PATIENT
  Age: 61 Year
  Sex: Female

DRUGS (5)
  1. NORVASC [Suspect]
     Active Substance: AMLODIPINE BESYLATE
     Indication: BLOOD PRESSURE MEASUREMENT
     Dosage: UNK
  2. VITAMIN D /00107901/ [Concomitant]
     Active Substance: ERGOCALCIFEROL
     Dosage: UNK
  3. CALCIUM [Concomitant]
     Active Substance: CALCIUM
     Dosage: UNK
  4. OLMETEC HCT [Suspect]
     Active Substance: HYDROCHLOROTHIAZIDE\OLMESARTAN MEDOXOMIL
     Indication: BLOOD PRESSURE MEASUREMENT
     Dosage: UNK
  5. VITAMIN E /00110501/ [Concomitant]
     Active Substance: TOCOPHEROL
     Dosage: UNK

REACTIONS (2)
  - Joint injury [Unknown]
  - Fall [Not Recovered/Not Resolved]

NARRATIVE: CASE EVENT DATE: 20180417
